APPROVED DRUG PRODUCT: PENICILLAMINE
Active Ingredient: PENICILLAMINE
Strength: 250MG
Dosage Form/Route: CAPSULE;ORAL
Application: A211867 | Product #001 | TE Code: AB
Applicant: DR REDDYS LABORATORIES LTD
Approved: Aug 4, 2020 | RLD: No | RS: No | Type: RX